FAERS Safety Report 5850389-1 (Version None)
Quarter: 2008Q3

REPORT INFORMATION
  Report Type: 
  Country: None (occurrence: None)
  Receive Date: 20080818
  Receipt Date: 20080718
  Transmission Date: 20090109
  Serious: No
  Sender: FDA-Public Use
  Company Number: US024306

PATIENT
  Age: 1 Year
  Sex: Female

DRUGS (1)
  1. FENTORA [Suspect]
     Dosage: ONCE BUCCAL
     Route: 002
     Dates: start: 20080101, end: 20080101

REACTIONS (1)
  - ACCIDENTAL EXPOSURE [None]
